FAERS Safety Report 9697976 (Version 1)
Quarter: 2013Q4

REPORT INFORMATION
  Report Type: Spontaneous
  Country: FR (occurrence: None)
  Receive Date: 20131118
  Receipt Date: 20131118
  Transmission Date: 20140711
  Serious: Yes (Death)
  Sender: FDA-Public Use
  Company Number: 2009341

PATIENT
  Age: 60 Year
  Sex: Male

DRUGS (2)
  1. CARBOPLATIN [Suspect]
     Indication: LUNG ADENOCARCINOMA METASTATIC
     Route: 042
     Dates: start: 20130327, end: 20130327
  2. PACLITAXEL MYLAN [Suspect]
     Indication: LUNG ADENOCARCINOMA METASTATIC
     Route: 042
     Dates: start: 20130327, end: 20130403

REACTIONS (6)
  - Septic shock [None]
  - Febrile bone marrow aplasia [None]
  - Respiratory failure [None]
  - Pulmonary oedema [None]
  - Metabolic acidosis [None]
  - Multi-organ failure [None]
